FAERS Safety Report 24884720 (Version 1)
Quarter: 2025Q1

REPORT INFORMATION
  Report Type: Spontaneous
  Country: US (occurrence: US)
  Receive Date: 20250124
  Receipt Date: 20250124
  Transmission Date: 20250408
  Serious: Yes (Disabling)
  Sender: TEVA
  Company Number: US-TEVA-VS-3288850

PATIENT
  Age: 48 Year
  Sex: Female

DRUGS (2)
  1. CLONIDINE [Suspect]
     Active Substance: CLONIDINE
     Indication: Blood pressure abnormal
     Route: 062
     Dates: start: 2024
  2. CLONIDINE [Suspect]
     Active Substance: CLONIDINE
     Route: 062
     Dates: start: 2020, end: 2023

REACTIONS (6)
  - Disability [Unknown]
  - Hot flush [Unknown]
  - Product adhesion issue [Unknown]
  - Motor dysfunction [Unknown]
  - Blood pressure increased [Unknown]
  - Inability to afford medication [Unknown]
